FAERS Safety Report 8861937 (Version 2)
Quarter: 2012Q4

REPORT INFORMATION
  Report Type: Spontaneous
  Country: US (occurrence: None)
  Receive Date: 20121023
  Receipt Date: 20121115
  Transmission Date: 20130627
  Serious: Yes (Death, Hospitalization)
  Sender: FDA-Public Use
  Company Number: DSA_60263_2012

PATIENT
  Age: 75 Year
  Sex: Female

DRUGS (10)
  1. XENAZINE [Suspect]
     Indication: TARDIVE DYSKINESIA
     Route: 048
  2. XENAZINE [Suspect]
     Indication: TARDIVE DYSKINESIA
     Route: 048
  3. INSULIN [Concomitant]
  4. SIMVASTATIN [Concomitant]
  5. VITAMIN B [Concomitant]
  6. NEURONTIN [Concomitant]
  7. RENVELA [Concomitant]
  8. RANITIDINE [Concomitant]
  9. SERTRALINE [Concomitant]
  10. MORPHINE [Concomitant]

REACTIONS (13)
  - Death [None]
  - Cardio-respiratory arrest [None]
  - Aspiration [None]
  - Pulseless electrical activity [None]
  - Confusional state [None]
  - Anxiety [None]
  - Hallucination, visual [None]
  - Constipation [None]
  - Decubitus ulcer [None]
  - Laceration [None]
  - Tardive dyskinesia [None]
  - Dysphagia [None]
  - Pneumonia [None]
